FAERS Safety Report 7792775-9 (Version None)
Quarter: 2011Q4

REPORT INFORMATION
  Report Type: 
  Country: None (occurrence: None)
  Receive Date: 20111003
  Receipt Date: 20110926
  Transmission Date: 20120403
  Serious: Yes (Hospitalization)
  Sender: FDA-Public Use
  Company Number: US-AMGEN-USASP2011049757

PATIENT
  Age: 70 Year
  Sex: Male

DRUGS (2)
  1. CLADRIBINE [Concomitant]
     Indication: HAIRY CELL LEUKAEMIA
  2. NEULASTA [Suspect]
     Indication: NEUTROPENIA
     Dates: start: 20110823

REACTIONS (5)
  - LUNG INFILTRATION [None]
  - NEUTROPHIL COUNT DECREASED [None]
  - PYREXIA [None]
  - ACUTE RESPIRATORY DISTRESS SYNDROME [None]
  - PLEURAL EFFUSION [None]
